FAERS Safety Report 24989674 (Version 2)
Quarter: 2025Q2

REPORT INFORMATION
  Report Type: Spontaneous
  Country: TR (occurrence: TR)
  Receive Date: 20250220
  Receipt Date: 20250509
  Transmission Date: 20250717
  Serious: Yes (Hospitalization)
  Sender: ACCORD
  Company Number: TR-Accord-470088

PATIENT
  Age: 6 Year
  Sex: Female
  Weight: 25 kg

DRUGS (13)
  1. HYDROXYCHLOROQUINE [Suspect]
     Active Substance: HYDROXYCHLOROQUINE
     Indication: Pulmonary haemosiderosis
     Dosage: STARTED ON 50 MG HYDROXYCHLOROQUINE DIVIDED IN TO TWO DOSES (2 MG/KG/D)
  2. CLARITHROMYCIN [Suspect]
     Active Substance: CLARITHROMYCIN
     Indication: Antibiotic therapy
     Dosage: 15MG/KG/D
  3. METHYLPREDNISOLONE [Suspect]
     Active Substance: METHYLPREDNISOLONE
     Indication: Pulmonary haemosiderosis
     Dosage: 2MG/KG/G STEROID DOSE WAS GRADUALLY REDUCED AND LATER INCREASED TO 2MG/KG/D
  4. CEFTRIAXONE [Concomitant]
     Active Substance: CEFTRIAXONE
     Indication: Antibiotic therapy
     Dosage: 75MG/KG/D
  5. ENALAPRIL [Concomitant]
     Active Substance: ENALAPRIL
     Indication: Focal segmental glomerulosclerosis
  6. HYDROXYCHLOROQUINE [Suspect]
     Active Substance: HYDROXYCHLOROQUINE
     Indication: Pulmonary haemosiderosis
     Dosage: WAS INCREASED TO 100 MG/DAY (4 MG/KG/D).
  7. HYDROXYCHLOROQUINE [Suspect]
     Active Substance: HYDROXYCHLOROQUINE
     Indication: Pulmonary haemosiderosis
  8. HYDROXYCHLOROQUINE [Suspect]
     Active Substance: HYDROXYCHLOROQUINE
     Indication: Pneumonia
     Dosage: STARTED ON 50 MG HYDROXYCHLOROQUINE DIVIDED IN TO TWO DOSES (2 MG/KG/D)
  9. HYDROXYCHLOROQUINE [Suspect]
     Active Substance: HYDROXYCHLOROQUINE
     Indication: Pneumonia
     Dosage: WAS INCREASED TO 100 MG/DAY (4 MG/KG/D).
  10. HYDROXYCHLOROQUINE [Suspect]
     Active Substance: HYDROXYCHLOROQUINE
     Indication: Pneumonia
  11. CLARITHROMYCIN [Suspect]
     Active Substance: CLARITHROMYCIN
     Indication: Pulmonary haemosiderosis
  12. CEFTRIAXONE [Concomitant]
     Active Substance: CEFTRIAXONE
     Indication: Pulmonary haemosiderosis
  13. METHYLPREDNISOLONE [Suspect]
     Active Substance: METHYLPREDNISOLONE
     Indication: Pneumonia
     Dosage: 2MG/KG/G STEROID DOSE WAS GRADUALLY REDUCED AND LATER INCREASED TO 2MG/KG/D

REACTIONS (7)
  - Agitation [Recovered/Resolved]
  - Neuropsychological symptoms [Recovered/Resolved]
  - Confusional state [Recovered/Resolved]
  - Restlessness [Recovered/Resolved]
  - Amnesia [Recovered/Resolved]
  - Diplopia [Recovered/Resolved]
  - Myoclonus [Recovered/Resolved]
